FAERS Safety Report 18512577 (Version 1)
Quarter: 2020Q4

REPORT INFORMATION
  Report Type: Spontaneous
  Country: GB (occurrence: GB)
  Receive Date: 20201117
  Receipt Date: 20201117
  Transmission Date: 20210114
  Serious: Yes (Life-Threatening)
  Sender: FDA-Public Use
  Company Number: GB-TEVA-2020-GB-1848870

PATIENT
  Age: 77 Year
  Sex: Male
  Weight: 112 kg

DRUGS (4)
  1. PERINDOPRIL TERT-BUTYLAMINE [Concomitant]
     Active Substance: PERINDOPRIL ERBUMINE
     Dosage: 1 DOSAGE FORMS DAILY; AT NIGHT.
     Dates: start: 20191224
  2. AMLODIPINE [Concomitant]
     Active Substance: AMLODIPINE BESYLATE
     Dosage: UNIT DOSE 1DF
     Dates: start: 20190814
  3. NAPROXEN. [Suspect]
     Active Substance: NAPROXEN
     Dosage: UNIT DOSE 500MG
     Dates: start: 20201020
  4. AVAMYS [Concomitant]
     Active Substance: FLUTICASONE FUROATE
     Dosage: USE ONCE DAILY
     Dates: start: 20190823

REACTIONS (1)
  - Anaphylactic reaction [Recovered/Resolved]

NARRATIVE: CASE EVENT DATE: 20201020
